FAERS Safety Report 25674797 (Version 2)
Quarter: 2025Q3

REPORT INFORMATION
  Report Type: Spontaneous
  Country: CN (occurrence: CN)
  Receive Date: 20250813
  Receipt Date: 20250820
  Transmission Date: 20251021
  Serious: Yes (Other)
  Sender: NOVARTIS
  Company Number: CN-002147023-NVSC2025CN125493

PATIENT
  Age: 16 Year
  Sex: Female
  Weight: 68 kg

DRUGS (2)
  1. OXCARBAZEPINE [Suspect]
     Active Substance: OXCARBAZEPINE
     Indication: Affective disorder
     Dosage: 300.000 MG, TID
     Route: 048
     Dates: start: 20250620, end: 20250627
  2. OXCARBAZEPINE [Suspect]
     Active Substance: OXCARBAZEPINE
     Dosage: 600.000 MG, TID
     Route: 048
     Dates: start: 20250627, end: 20250704

REACTIONS (4)
  - Cytopenia [Recovering/Resolving]
  - Pruritus [Recovering/Resolving]
  - Haemorrhage [Unknown]
  - Off label use [Unknown]

NARRATIVE: CASE EVENT DATE: 20250704
